FAERS Safety Report 9372709 (Version 1)
Quarter: 2013Q2

REPORT INFORMATION
  Report Type: Report from Study
  Country: US (occurrence: US)
  Receive Date: 20130627
  Receipt Date: 20130627
  Transmission Date: 20140414
  Serious: Yes (Death)
  Sender: FDA-Public Use
  Company Number: US-MYLANLABS-2013S1006474

PATIENT
  Age: 58 Year
  Sex: Female

DRUGS (3)
  1. CLOZAPINE TABLETS [Suspect]
     Indication: SCHIZOAFFECTIVE DISORDER
     Route: 048
     Dates: start: 201107, end: 201302
  2. DIVALPROEX [Concomitant]
     Route: 048
     Dates: start: 20130128
  3. DOXEPIN [Concomitant]
     Route: 048
     Dates: start: 20130128

REACTIONS (1)
  - Death [Fatal]
